FAERS Safety Report 7893740-3 (Version None)
Quarter: 2011Q4

REPORT INFORMATION
  Report Type: 
  Country: None (occurrence: None)
  Receive Date: 20111104
  Receipt Date: 20111028
  Transmission Date: 20120403
  Serious: Yes (Hospitalization)
  Sender: FDA-Public Use
  Company Number: PHHY2011GB95539

PATIENT
  Sex: Male

DRUGS (11)
  1. METFORMIN HCL [Concomitant]
     Dosage: 850 MG, TID
     Route: 048
  2. BENDROFLUMETHIAZIDE [Concomitant]
     Dosage: 2.5 MG, QD
     Route: 048
  3. SIMVASTATIN [Concomitant]
     Dosage: 10 MG, QD
     Route: 048
  4. ATENOLOL [Concomitant]
     Dosage: 100 MG, QD
  5. FOLIC ACID [Concomitant]
     Dosage: 5 MG, QD
     Route: 048
  6. GLUCOSAMINE [Concomitant]
     Dosage: 500 MG, TID
     Route: 048
  7. WARFARIN SODIUM [Concomitant]
     Dosage: 1 MG, UNK
  8. METHOTREXATE [Suspect]
     Indication: PSORIASIS
     Dosage: 15 MG, QW
     Route: 048
  9. FUROSEMIDE [Concomitant]
     Dosage: 20 MG, QD
     Route: 048
  10. PIOGLITAZONE [Concomitant]
     Dosage: 30 MG, QD
     Route: 048
  11. TRAMADOL HCL [Concomitant]
     Dosage: 50 MG, QID
     Route: 048

REACTIONS (1)
  - SCROTAL OEDEMA [None]
